FAERS Safety Report 7419675-8 (Version None)
Quarter: 2011Q1

REPORT INFORMATION
  Report Type: 
  Country: None (occurrence: None)
  Receive Date: 20110302
  Receipt Date: 20101201
  Transmission Date: 20110831
  Serious: No
  Sender: FDA-Public Use
  Company Number: 023269

PATIENT
  Sex: Female
  Weight: 59 kg

DRUGS (2)
  1. BENICAR [Concomitant]
  2. CIMZIA [Suspect]
     Indication: CROHN'S DISEASE
     Dosage: (TWO SHOTS SUBCUTANEOUS)
     Route: 058
     Dates: start: 20100907

REACTIONS (2)
  - ARTHRITIS [None]
  - ARTHRALGIA [None]
